FAERS Safety Report 24588406 (Version 1)
Quarter: 2024Q4

REPORT INFORMATION
  Report Type: Spontaneous
  Country: JP (occurrence: JP)
  Receive Date: 20241107
  Receipt Date: 20241107
  Transmission Date: 20250114
  Serious: Yes (Hospitalization)
  Sender: SANDOZ
  Company Number: JP-002147023-NVSC2024JP211067

PATIENT
  Age: 79 Year
  Sex: Female

DRUGS (7)
  1. FULVESTRANT [Suspect]
     Active Substance: FULVESTRANT
     Indication: Invasive breast carcinoma
     Dosage: 500 MG
     Route: 030
  2. FULVESTRANT [Suspect]
     Active Substance: FULVESTRANT
     Indication: Dermatomyositis
  3. IMMUNE GLOBULIN NOS [Suspect]
     Active Substance: IMMUNE GLOBULIN NOS
     Indication: Dermatomyositis
     Dosage: AGAIN RECEIVED AT 0.4?G/KG/DAY
     Route: 065
  4. IMMUNE GLOBULIN NOS [Suspect]
     Active Substance: IMMUNE GLOBULIN NOS
     Indication: Invasive breast carcinoma
     Dosage: STARTED RECEIVING 0.4?G/KG/DAY FOR 5 DAYS
     Route: 065
  5. PREDNISOLONE [Suspect]
     Active Substance: PREDNISOLONE
     Indication: Invasive breast carcinoma
     Dosage: 1 MG/KG, QD
     Route: 065
  6. TACROLIMUS [Suspect]
     Active Substance: TACROLIMUS
     Indication: Invasive breast carcinoma
     Dosage: 5?10?NG/ML
     Route: 065
  7. TACROLIMUS [Suspect]
     Active Substance: TACROLIMUS
     Indication: Dermatomyositis

REACTIONS (5)
  - Disease progression [Unknown]
  - Breast cancer [Unknown]
  - Muscular weakness [Unknown]
  - Dysphagia [Unknown]
  - Drug ineffective [Unknown]
